FAERS Safety Report 5317031-X (Version None)
Quarter: 2007Q2

REPORT INFORMATION
  Report Type: 
  Country: None (occurrence: None)
  Receive Date: 20070504
  Receipt Date: 20070424
  Transmission Date: 20071010
  Serious: Yes (Hospitalization, Other)
  Sender: FDA-Public Use
  Company Number: PFIZER INC-2007035168

PATIENT
  Age: 35 Year
  Sex: Female

DRUGS (9)
  1. CHANTIX [Suspect]
  2. CELEXA [Concomitant]
     Dosage: DAILY DOSE:40MG
  3. NEURONTIN [Concomitant]
     Dosage: DAILY DOSE:5000MG
  4. ADDERALL XR 10 [Concomitant]
     Dosage: DAILY DOSE:30MG
  5. KLONOPIN [Concomitant]
  6. RESTORIL [Concomitant]
     Dosage: DAILY DOSE:30MG
  7. SEROQUEL [Concomitant]
     Dosage: DAILY DOSE:400MG
  8. FLOVENT [Concomitant]
     Dosage: TEXT:INHALE 2 PUFFS-FREQ:TWICE A DAY
  9. XOPENEX [Concomitant]
     Dosage: TEXT:2 INHALATIONS-FREQ:TWICE A DAY

REACTIONS (10)
  - ABDOMINAL DISTENSION [None]
  - BLOOD CREATINE PHOSPHOKINASE INCREASED [None]
  - FATIGUE [None]
  - HEADACHE [None]
  - LIVER FUNCTION TEST ABNORMAL [None]
  - NAUSEA [None]
  - OEDEMA PERIPHERAL [None]
  - PAIN IN EXTREMITY [None]
  - SENSATION OF HEAVINESS [None]
  - WEIGHT INCREASED [None]
